FAERS Safety Report 6321461-7 (Version None)
Quarter: 2009Q3

REPORT INFORMATION
  Report Type: 
  Country: None (occurrence: None)
  Receive Date: 20090822
  Receipt Date: 20090202
  Transmission Date: 20100115
  Serious: No
  Sender: FDA-Public Use
  Company Number: US-ABBOTT-09P-163-0501514-00

PATIENT
  Age: 68 Year
  Sex: Male
  Weight: 86.714 kg

DRUGS (9)
  1. NIASPAN [Suspect]
     Indication: BLOOD CHOLESTEROL INCREASED
     Dates: start: 20090130
  2. TOPROL-XL [Concomitant]
     Indication: HYPERTENSION
  3. ALTACE [Concomitant]
     Indication: CORONARY ARTERY DISEASE
  4. DETROL LA [Concomitant]
     Indication: DRUG USE FOR UNKNOWN INDICATION
  5. NAPROXEN [Concomitant]
     Indication: DRUG USE FOR UNKNOWN INDICATION
  6. ACIPHEX [Concomitant]
     Indication: GASTROOESOPHAGEAL REFLUX DISEASE
  7. SONATA [Concomitant]
     Indication: INSOMNIA
  8. VITAMIN B COMPLEX CAP [Concomitant]
     Indication: VITAMIN SUPPLEMENTATION
  9. GARLIC [Concomitant]
     Indication: SUPPLEMENTATION THERAPY

REACTIONS (1)
  - CHEILITIS [None]
